FAERS Safety Report 19425523 (Version 1)
Quarter: 2021Q2

REPORT INFORMATION
  Report Type: Spontaneous
  Country: US (occurrence: US)
  Receive Date: 20210616
  Receipt Date: 20210616
  Transmission Date: 20210717
  Serious: No
  Sender: FDA-Public Use
  Company Number: US-ORGANON-O2106USA001334

PATIENT
  Age: 30 Year
  Sex: Female
  Weight: 55.02 kg

DRUGS (2)
  1. NAPROXEN. [Concomitant]
     Active Substance: NAPROXEN
     Dosage: UNK
  2. NEXPLANON [Suspect]
     Active Substance: ETONOGESTREL
     Indication: CONTRACEPTION
     Dosage: 1 DOSAGE FORM (IMPLANT)
     Route: 059
     Dates: start: 20210524

REACTIONS (1)
  - Implant site infection [Recovering/Resolving]

NARRATIVE: CASE EVENT DATE: 20210604
